FAERS Safety Report 7038183-X (Version None)
Quarter: 2010Q4

REPORT INFORMATION
  Report Type: 
  Country: None (occurrence: None)
  Receive Date: 20101011
  Receipt Date: 20101004
  Transmission Date: 20110411
  Serious: Yes (Other)
  Sender: FDA-Public Use
  Company Number: TH-WATSON-2010-13543

PATIENT
  Age: 16 Year

DRUGS (1)
  1. DEFEROXAMINE MESYLATE (WATSON LABORATORIES) [Suspect]
     Indication: IRON OVERLOAD
     Dosage: UNK MG, 2/WEEK
     Route: 042
     Dates: start: 20080501

REACTIONS (1)
  - AEROMONA INFECTION [None]
